FAERS Safety Report 25685503 (Version 1)
Quarter: 2025Q3

REPORT INFORMATION
  Report Type: Spontaneous
  Country: NZ (occurrence: NZ)
  Receive Date: 20250815
  Receipt Date: 20250815
  Transmission Date: 20251020
  Serious: Yes (Death, Life-Threatening, Hospitalization)
  Sender: GALPHARM INTERNATIONAL
  Company Number: NZ-SA-2025SA200789

PATIENT
  Age: 85 Year
  Sex: Female

DRUGS (6)
  1. ACETAMINOPHEN [Interacting]
     Active Substance: ACETAMINOPHEN
     Indication: Product used for unknown indication
     Dosage: 4 G, QD
     Route: 048
  2. CARBAMAZEPINE [Interacting]
     Active Substance: CARBAMAZEPINE
     Indication: Epilepsy
     Route: 065
  3. PHENYTOIN [Interacting]
     Active Substance: PHENYTOIN
     Indication: Epilepsy
     Route: 065
  4. PHENOBARBITAL [Interacting]
     Active Substance: PHENOBARBITAL
     Indication: Epilepsy
     Route: 065
  5. PERINDOPRIL [Concomitant]
     Active Substance: PERINDOPRIL
     Indication: Product used for unknown indication
     Route: 065
  6. CEFUROXIME [Concomitant]
     Active Substance: CEFUROXIME
     Indication: Pneumonia
     Route: 042

REACTIONS (3)
  - Pyroglutamic acidosis [Fatal]
  - Metabolic acidosis [Fatal]
  - Drug interaction [Fatal]
